FAERS Safety Report 4613843-6 (Version None)
Quarter: 2005Q1

REPORT INFORMATION
  Report Type: 
  Country: None (occurrence: None)
  Receive Date: 20050321
  Receipt Date: 20050309
  Transmission Date: 20050727
  Serious: Yes (Hospitalization)
  Sender: FDA-Public Use
  Company Number: FR-BRISTOL-MYERS SQUIBB COMPANY-12893509

PATIENT
  Age: 63 Year
  Sex: Male

DRUGS (3)
  1. REYATAZ [Suspect]
     Indication: HIV INFECTION
     Route: 048
     Dates: start: 20040913
  2. VIREAD [Suspect]
     Indication: HIV INFECTION
     Dates: start: 20040913
  3. EPIVIR [Suspect]
     Indication: HIV INFECTION
     Dates: start: 20040913

REACTIONS (2)
  - BRONCHOPNEUMONIA [None]
  - JAUNDICE [None]
